FAERS Safety Report 6133202-7 (Version None)
Quarter: 2009Q1

REPORT INFORMATION
  Report Type: 
  Country: None (occurrence: None)
  Receive Date: 20090325
  Receipt Date: 20090325
  Transmission Date: 20090719
  Serious: Yes (Other)
  Sender: FDA-Public Use
  Company Number: None

PATIENT
  Age: 24 Year
  Sex: Female
  Weight: 58.9676 kg

DRUGS (1)
  1. YAZ [Suspect]
     Indication: CONTRACEPTION
     Dosage: 28 TABLETS ONCE NIGHTLY PO
     Route: 048
     Dates: start: 20081010, end: 20090324

REACTIONS (8)
  - ABDOMINAL PAIN [None]
  - CRYING [None]
  - DEPRESSION [None]
  - EAR PAIN [None]
  - HEADACHE [None]
  - INAPPROPRIATE AFFECT [None]
  - MUSCLE SPASMS [None]
  - PARAESTHESIA [None]
